FAERS Safety Report 24983777 (Version 1)
Quarter: 2025Q1

REPORT INFORMATION
  Report Type: Other
  Country: FR (occurrence: FR)
  Receive Date: 20250219
  Receipt Date: 20250219
  Transmission Date: 20250409
  Serious: Yes (Hospitalization)
  Sender: GLENMARK
  Company Number: None

PATIENT

DRUGS (4)
  1. ATOVAQUONE [Suspect]
     Active Substance: ATOVAQUONE
     Indication: Malaria prophylaxis
     Route: 048
     Dates: start: 20250125
  2. ATOVAQUONE [Suspect]
     Active Substance: ATOVAQUONE
     Route: 065
  3. CLINDAMYCIN HYDROCHLORIDE [Suspect]
     Active Substance: CLINDAMYCIN HYDROCHLORIDE
     Indication: Toxoplasmosis
     Route: 048
     Dates: start: 20250126, end: 20250205
  4. CLINDAMYCIN HYDROCHLORIDE [Suspect]
     Active Substance: CLINDAMYCIN HYDROCHLORIDE
     Route: 065

REACTIONS (1)
  - Rash maculo-papular [Not Recovered/Not Resolved]

NARRATIVE: CASE EVENT DATE: 20250203
